FAERS Safety Report 10989774 (Version 4)
Quarter: 2018Q4

REPORT INFORMATION
  Report Type: Report from Study
  Country: US (occurrence: US)
  Receive Date: 20150406
  Receipt Date: 20181213
  Transmission Date: 20190204
  Serious: Yes (Hospitalization, Other)
  Sender: FDA-Public Use
  Company Number: US-SA-2015SA040870

PATIENT
  Age: 59 Year
  Sex: Male

DRUGS (1)
  1. INSULIN GLARGINE [Suspect]
     Active Substance: INSULIN GLARGINE
     Indication: TYPE 2 DIABETES MELLITUS
     Dosage: 40 UNITS IN THE MORNING AND 60 UNITS AT NIGHT,BID
     Route: 058

REACTIONS (5)
  - Renal failure [Recovered/Resolved]
  - Inappropriate schedule of product administration [Unknown]
  - Bedridden [Recovering/Resolving]
  - Pericardial effusion [Unknown]
  - Dyspnoea [Recovering/Resolving]

NARRATIVE: CASE EVENT DATE: 201811
